FAERS Safety Report 9463617 (Version 2)
Quarter: 2013Q4

REPORT INFORMATION
  Report Type: Spontaneous
  Country: CN (occurrence: CN)
  Receive Date: 20130819
  Receipt Date: 20131022
  Transmission Date: 20140711
  Serious: Yes (Hospitalization, Other)
  Sender: FDA-Public Use
  Company Number: PHHY2013CN085811

PATIENT
  Age: 81 Year
  Sex: Female
  Weight: 75 kg

DRUGS (6)
  1. ZOMETA [Suspect]
     Indication: BONE LOSS
     Dosage: 4 MG, ONCE PER SIX MONTHS
     Route: 042
     Dates: start: 20130729
  2. FEMARA [Suspect]
     Indication: BREAST CANCER
     Dosage: 2.5 MG, PER DAY
     Route: 048
     Dates: start: 2010
  3. LEVAMLODIPINE MALEATE [Concomitant]
     Indication: HYPERTENSION
     Dosage: 2.5 MG PER DAY
     Route: 048
  4. OLMESARTAN MEDOXOMIL [Concomitant]
     Indication: HYPERTENSION
     Dosage: 20 MG PER DAY
     Route: 048
  5. TORASEMIDE [Concomitant]
     Indication: HYPERTENSION
     Dosage: 2.5 MG PER DAY
     Route: 048
  6. BETALOC [Concomitant]
     Indication: HYPERTENSION
     Dosage: 12.5 MG PER DAY
     Route: 048

REACTIONS (6)
  - Lymphocyte count decreased [Unknown]
  - Platelet count decreased [Unknown]
  - Pyrexia [Recovering/Resolving]
  - Bronchitis [Recovering/Resolving]
  - Splenomegaly [Unknown]
  - Respiratory tract infection [Unknown]
